FAERS Safety Report 5227600-3 (Version None)
Quarter: 2007Q1

REPORT INFORMATION
  Report Type: 
  Country: None (occurrence: None)
  Receive Date: 20070202
  Receipt Date: 20070122
  Transmission Date: 20070707
  Serious: Yes (Other)
  Sender: FDA-Public Use
  Company Number: PHRM2007FR00647

PATIENT
  Sex: Female

DRUGS (1)
  1. LESCOL [Suspect]
     Dosage: 40 MG, BID
     Route: 048

REACTIONS (2)
  - ABDOMINAL PAIN [None]
  - SIGMOIDITIS [None]
